FAERS Safety Report 5904176-6 (Version None)
Quarter: 2008Q4

REPORT INFORMATION
  Report Type: 
  Country: None (occurrence: None)
  Receive Date: 20081001
  Receipt Date: 20080930
  Transmission Date: 20090506
  Serious: Yes (Hospitalization)
  Sender: FDA-Public Use
  Company Number: US-BAYER-200814152NA

PATIENT
  Age: 36 Year
  Sex: Female

DRUGS (2)
  1. BETASERON [Suspect]
     Indication: SECONDARY PROGRESSIVE MULTIPLE SCLEROSIS
     Dosage: TOTAL DAILY DOSE: 8 MIU
     Route: 058
     Dates: start: 20070531, end: 20080119
  2. TYSABRI [Concomitant]
     Dates: start: 20080101

REACTIONS (3)
  - GRAND MAL CONVULSION [None]
  - MIGRAINE [None]
  - SECONDARY PROGRESSIVE MULTIPLE SCLEROSIS [None]
